FAERS Safety Report 16118885 (Version 2)
Quarter: 2019Q1

REPORT INFORMATION
  Report Type: Spontaneous
  Country: US (occurrence: US)
  Receive Date: 20190326
  Receipt Date: 20190328
  Transmission Date: 20190418
  Serious: No
  Sender: FDA-Public Use
  Company Number: US-BAYER-2019-059236

PATIENT
  Age: 89 Year
  Sex: Female
  Weight: 39 kg

DRUGS (7)
  1. MIRALAX [Suspect]
     Active Substance: POLYETHYLENE GLYCOL 3350
     Indication: IRRITABLE BOWEL SYNDROME
     Dosage: 1 UNK
     Route: 048
     Dates: start: 20190324
  2. MIRALAX [Suspect]
     Active Substance: POLYETHYLENE GLYCOL 3350
     Indication: IRRITABLE BOWEL SYNDROME
     Dosage: UNK, QD
  3. MIRALAX [Suspect]
     Active Substance: POLYETHYLENE GLYCOL 3350
     Indication: CONSTIPATION
     Dosage: 1 DF
     Route: 048
     Dates: start: 20190321, end: 20190323
  4. COREG [Concomitant]
     Active Substance: CARVEDILOL
     Dosage: UNK
  5. SPIRIVA [Concomitant]
     Active Substance: TIOTROPIUM BROMIDE MONOHYDRATE
     Dosage: UNK
  6. LEVOTHYROXINE. [Concomitant]
     Active Substance: LEVOTHYROXINE
     Dosage: UNK
  7. DILTIAZEM. [Concomitant]
     Active Substance: DILTIAZEM
     Dosage: UNK

REACTIONS (6)
  - Product use in unapproved indication [Unknown]
  - Product odour abnormal [Unknown]
  - Inappropriate schedule of product administration [None]
  - Product taste abnormal [None]
  - Off label use [Unknown]
  - Abdominal discomfort [Unknown]
